FAERS Safety Report 10877971 (Version 1)
Quarter: 2015Q1

REPORT INFORMATION
  Report Type: Spontaneous
  Country: US (occurrence: US)
  Receive Date: 20150302
  Receipt Date: 20150302
  Transmission Date: 20150721
  Serious: No
  Sender: FDA-Public Use
  Company Number: US-ABBVIE-12P-163-0921347-00

PATIENT
  Age: 65 Year
  Sex: Male
  Weight: 108.05 kg

DRUGS (5)
  1. ANDROGEL [Suspect]
     Active Substance: TESTOSTERONE
     Dosage: PACKETS
     Route: 061
     Dates: start: 201202, end: 201203
  2. ANDROGEL [Suspect]
     Active Substance: TESTOSTERONE
     Indication: BLOOD TESTOSTERONE DECREASED
     Dosage: PACKETS
     Route: 061
     Dates: start: 2011, end: 201202
  3. ANDROGEL [Suspect]
     Active Substance: TESTOSTERONE
     Dosage: 1 PACKET M,W,F,SAT,SUN 2 PACKET T, TH
     Route: 061
     Dates: start: 201203
  4. HUMALOG [Concomitant]
     Active Substance: INSULIN LISPRO
     Indication: DIABETES MELLITUS
  5. LANTUS [Concomitant]
     Active Substance: INSULIN GLARGINE
     Indication: DIABETES MELLITUS

REACTIONS (4)
  - Asthenia [Not Recovered/Not Resolved]
  - Blood testosterone decreased [Unknown]
  - Blood testosterone decreased [Recovered/Resolved]
  - Blood testosterone increased [Recovered/Resolved]

NARRATIVE: CASE EVENT DATE: 2011
